FAERS Safety Report 5518837-4 (Version None)
Quarter: 2007Q4

REPORT INFORMATION
  Report Type: 
  Country: None (occurrence: None)
  Receive Date: 20071113
  Receipt Date: 20071026
  Transmission Date: 20080405
  Serious: Yes (Hospitalization)
  Sender: FDA-Public Use
  Company Number: GXKR2007PL09269

PATIENT
  Age: 27 Year
  Sex: Female

DRUGS (1)
  1. VERAPAMIL [Suspect]

REACTIONS (2)
  - NODAL RHYTHM [None]
  - OVERDOSE [None]
